FAERS Safety Report 18394611 (Version 2)
Quarter: 2020Q4

REPORT INFORMATION
  Report Type: Spontaneous
  Country: CN (occurrence: CN)
  Receive Date: 20201016
  Receipt Date: 20201026
  Transmission Date: 20210114
  Serious: Yes (Hospitalization)
  Sender: FDA-Public Use
  Company Number: CN-ASTRAZENECA-2020SF33422

PATIENT

DRUGS (1)
  1. SYMBICORT [Suspect]
     Active Substance: BUDESONIDE\FORMOTEROL FUMARATE DIHYDRATE
     Indication: ASTHMA
     Dosage: 160 MICROGRAMS, 60 INHALATIONS, FOR 3 YEARS UNKNOWN
     Route: 055

REACTIONS (3)
  - Product packaging quantity issue [Unknown]
  - Asthma [Unknown]
  - Underdose [Unknown]
